FAERS Safety Report 7372511-0 (Version None)
Quarter: 2011Q1

REPORT INFORMATION
  Report Type: 
  Country: None (occurrence: None)
  Receive Date: 20110215
  Receipt Date: 20110306
  Transmission Date: 20110831
  Serious: Yes (Death)
  Sender: FDA-Public Use
  Company Number: GB-DEXPHARM-20110318

PATIENT
  Age: 63 Year
  Sex: Male
  Weight: 68 kg

DRUGS (1)
  1. CHLORHEXIDINE GLUCONATE [Suspect]
     Dosage: ORAL
     Route: 048

REACTIONS (1)
  - ANAPHYLACTIC SHOCK [None]
